FAERS Safety Report 14229677 (Version 1)
Quarter: 2017Q4

REPORT INFORMATION
  Report Type: Spontaneous
  Country: US (occurrence: US)
  Receive Date: 20171128
  Receipt Date: 20171128
  Transmission Date: 20180321
  Serious: Yes (Life-Threatening)
  Sender: FDA-Public Use
  Company Number: US-WEST-WARD PHARMACEUTICALS CORP.-US-H14001-17-04445

PATIENT
  Age: 77 Year
  Sex: Female

DRUGS (5)
  1. HEPARIN [Suspect]
     Active Substance: HEPARIN SODIUM
     Indication: ANTICOAGULANT THERAPY
     Route: 042
  2. BOVINE THROMBIN [Suspect]
     Active Substance: THROMBIN
     Indication: ANTICOAGULANT THERAPY
     Dosage: 5000 U
     Route: 042
  3. PROTAMINE [Concomitant]
     Active Substance: PROTAMINE
     Indication: HAEMOSTASIS
     Route: 065
  4. DOBUTAMINE [Concomitant]
     Active Substance: DOBUTAMINE\DOBUTAMINE HYDROCHLORIDE
     Indication: CARDIOPULMONARY BYPASS
     Route: 065
  5. NOREPINEPHRINE. [Concomitant]
     Active Substance: NOREPINEPHRINE
     Indication: CARDIOPULMONARY BYPASS
     Route: 065

REACTIONS (2)
  - Circulatory collapse [Recovered/Resolved]
  - Drug dispensing error [Recovered/Resolved]
